FAERS Safety Report 6037675-X (Version None)
Quarter: 2009Q1

REPORT INFORMATION
  Report Type: 
  Country: None (occurrence: None)
  Receive Date: 20090114
  Receipt Date: 20090105
  Transmission Date: 20090719
  Serious: Yes (Life-Threatening, Hospitalization)
  Sender: FDA-Public Use
  Company Number: US-PFIZER INC-2009152394

PATIENT
  Sex: Male
  Weight: 112 kg

DRUGS (2)
  1. CELECOXIB [Suspect]
     Dosage: 400 MG, 1X/DAY
     Route: 048
     Dates: start: 20020115, end: 20020115
  2. FOSINOPRIL [Concomitant]

REACTIONS (2)
  - ANGIOEDEMA [None]
  - RASH [None]
